FAERS Safety Report 13512099 (Version 5)
Quarter: 2018Q2

REPORT INFORMATION
  Report Type: Spontaneous
  Country: US (occurrence: US)
  Receive Date: 20170504
  Receipt Date: 20180430
  Transmission Date: 20180711
  Serious: Yes (Other)
  Sender: FDA-Public Use
  Company Number: ALCN2017US003028

PATIENT
  Age: 67 Year
  Sex: Male
  Weight: 98.34 kg

DRUGS (13)
  1. TRAVATAN [Suspect]
     Active Substance: TRAVOPROST
     Indication: PREOPERATIVE CARE
     Dosage: 1 GTT
     Route: 047
     Dates: start: 20170420
  2. BROMFENAC [Concomitant]
     Active Substance: BROMFENAC SODIUM
     Indication: PREOPERATIVE CARE
     Dosage: UNK UNK, QD
     Route: 047
     Dates: start: 20170413, end: 20170419
  3. LIDOCAINE. [Concomitant]
     Active Substance: LIDOCAINE
     Indication: PRODUCT USED FOR UNKNOWN INDICATION
     Route: 065
  4. BSS [Suspect]
     Active Substance: CALCIUM CHLORIDE\MAGNESIUM CHLORIDE\POTASSIUM CHLORIDE\SODIUM ACETATE\SODIUM CHLORIDE\SODIUM CITRATE
     Indication: EYE IRRIGATION
     Dosage: UNK
     Route: 047
     Dates: start: 20170420
  5. DUREZOL [Concomitant]
     Active Substance: DIFLUPREDNATE
     Indication: PREOPERATIVE CARE
     Dosage: UNK UNK, BID
     Route: 047
     Dates: start: 20170419, end: 20170419
  6. BETADINE [Suspect]
     Active Substance: POVIDONE-IODINE
     Indication: POSTOPERATIVE CARE
  7. BROMFENAC [Concomitant]
     Active Substance: BROMFENAC SODIUM
     Indication: POSTOPERATIVE CARE
     Dosage: UNK UNK, QD
     Route: 047
     Dates: start: 20170420, end: 20170421
  8. BETADINE [Suspect]
     Active Substance: POVIDONE-IODINE
     Indication: PREOPERATIVE CARE
     Dosage: UNK
     Route: 047
     Dates: start: 20170420
  9. ALCAINE [Suspect]
     Active Substance: PROPARACAINE HYDROCHLORIDE
     Indication: PREOPERATIVE CARE
     Dosage: UNK
     Route: 047
     Dates: start: 20170420
  10. COMBIGAN [Suspect]
     Active Substance: BRIMONIDINE TARTRATE\TIMOLOL MALEATE
     Indication: PREOPERATIVE CARE
     Dosage: 1 GTT
     Route: 047
  11. BESIVANCE [Concomitant]
     Active Substance: BESIFLOXACIN
     Indication: PREOPERATIVE CARE
     Dosage: UNK, TID
     Route: 047
     Dates: start: 20170417, end: 20170419
  12. BESIVANCE [Concomitant]
     Active Substance: BESIFLOXACIN
     Indication: POSTOPERATIVE CARE
     Dosage: UNK
     Route: 047
     Dates: start: 20170420, end: 20170421
  13. DUREZOL [Concomitant]
     Active Substance: DIFLUPREDNATE
     Indication: POSTOPERATIVE CARE
     Dosage: UNK UNK, BID
     Route: 047
     Dates: start: 20170420, end: 20170421

REACTIONS (5)
  - Eye inflammation [Unknown]
  - Corneal oedema [Unknown]
  - Toxic anterior segment syndrome [Unknown]
  - Visual impairment [Unknown]
  - Anterior chamber cell [Unknown]

NARRATIVE: CASE EVENT DATE: 20170421
